FAERS Safety Report 8051386-0 (Version None)
Quarter: 2012Q1

REPORT INFORMATION
  Report Type: 
  Country: None (occurrence: None)
  Receive Date: 20120117
  Receipt Date: 20120111
  Transmission Date: 20120608
  Serious: Yes (Life-Threatening, Hospitalization)
  Sender: FDA-Public Use
  Company Number: BR-ROCHE-1029721

PATIENT
  Sex: Female
  Weight: 53 kg

DRUGS (10)
  1. VENLIFT [Concomitant]
  2. TANDRILAX [Concomitant]
  3. CLARITHROMYCIN [Concomitant]
  4. LEVOFLOXACIN [Concomitant]
  5. DIMETICONE [Concomitant]
  6. PREDNISONE [Concomitant]
  7. ARCALION [Concomitant]
  8. OMEPRAZOLE [Concomitant]
  9. MABTHERA [Suspect]
     Indication: RHEUMATOID ARTHRITIS
     Route: 042
     Dates: start: 20100916, end: 20110217
  10. CLONAZEPAM [Concomitant]

REACTIONS (10)
  - NERVOUSNESS [None]
  - HEADACHE [None]
  - PAIN IN EXTREMITY [None]
  - DYSPNOEA [None]
  - LIMB INJURY [None]
  - INFARCTION [None]
  - LUNG INFECTION [None]
  - MALAISE [None]
  - LOCALISED INFECTION [None]
  - CHEST PAIN [None]
